FAERS Safety Report 10575582 (Version 1)
Quarter: 2014Q4

REPORT INFORMATION
  Report Type: Spontaneous
  Country: US (occurrence: US)
  Receive Date: 20141111
  Receipt Date: 20141111
  Transmission Date: 20150529
  Serious: No
  Sender: FDA-Public Use
  Company Number: US-PFIZER INC-2014304886

PATIENT
  Age: 78 Year
  Sex: Female

DRUGS (1)
  1. TOVIAZ [Suspect]
     Active Substance: FESOTERODINE FUMARATE
     Dosage: 4 MG, 1X/DAY

REACTIONS (3)
  - Suffocation feeling [Unknown]
  - Hot flush [Unknown]
  - Erythema [Unknown]
